FAERS Safety Report 20650851 (Version 2)
Quarter: 2022Q2

REPORT INFORMATION
  Report Type: Spontaneous
  Country: IE (occurrence: IE)
  Receive Date: 20220329
  Receipt Date: 20220401
  Transmission Date: 20220720
  Serious: Yes (Hospitalization, Other)
  Sender: FDA-Public Use
  Company Number: IE-AZURITY PHARMACEUTICALS, INC.-IE-2022ARB000821

PATIENT

DRUGS (2)
  1. AMPHETAMINE SULFATE [Suspect]
     Active Substance: AMPHETAMINE SULFATE
     Indication: Product used for unknown indication
     Dosage: UNK
     Route: 045
  2. AMPHETAMINE SULFATE [Suspect]
     Active Substance: AMPHETAMINE SULFATE
     Dosage: INCREASING USE OVER THE PREVIOUS 6 MONTHS WAS NOTED WITH DAILY USE FOR THE PRECEDING 3 MONTHS
     Route: 045

REACTIONS (4)
  - Embolic stroke [Unknown]
  - Epstein-Barr virus infection [Unknown]
  - Cardiomyopathy [Unknown]
  - Drug abuse [Unknown]
